FAERS Safety Report 23405830 (Version 1)
Quarter: 2024Q1

REPORT INFORMATION
  Report Type: Spontaneous
  Country: US (occurrence: US)
  Receive Date: 20240116
  Receipt Date: 20240116
  Transmission Date: 20240409
  Serious: No
  Sender: FDA-Public Use
  Company Number: US-HALOZYME THERAPEUTICS, INC.-2023-US-TU -03261

PATIENT

DRUGS (1)
  1. TLANDO [Suspect]
     Active Substance: TESTOSTERONE UNDECANOATE
     Indication: Hormone replacement therapy
     Dosage: UNK
     Route: 048

REACTIONS (5)
  - Dizziness [Unknown]
  - Vertigo [Unknown]
  - Nausea [Unknown]
  - Dyspnoea [Unknown]
  - Palpitations [Unknown]
